FAERS Safety Report 15880373 (Version 1)
Quarter: 2019Q1

REPORT INFORMATION
  Report Type: Spontaneous
  Country: US (occurrence: US)
  Receive Date: 20190128
  Receipt Date: 20190128
  Transmission Date: 20190417
  Serious: Yes (Other)
  Sender: FDA-Public Use
  Company Number: US-PFIZER INC-2019035354

PATIENT

DRUGS (1)
  1. SYNERCID [Suspect]
     Active Substance: DALFOPRISTIN\QUINUPRISTIN
     Dosage: UNK

REACTIONS (2)
  - Enterococcal infection [Unknown]
  - Drug dependence [Unknown]
